FAERS Safety Report 5643157-7 (Version None)
Quarter: 2008Q1

REPORT INFORMATION
  Report Type: 
  Country: None (occurrence: None)
  Receive Date: 20080228
  Receipt Date: 20080220
  Transmission Date: 20080703
  Serious: Yes (Hospitalization)
  Sender: FDA-Public Use
  Company Number: US-AVENTIS-200811176US

PATIENT
  Sex: Female

DRUGS (1)
  1. ALLEGRA D 24 HOUR [Suspect]
     Dosage: DOSE: UNK
     Dates: start: 20080201

REACTIONS (4)
  - HALLUCINATION [None]
  - INSOMNIA [None]
  - MENTAL DISORDER [None]
  - SPEECH DISORDER [None]
